FAERS Safety Report 5206547-2 (Version None)
Quarter: 2006Q4

REPORT INFORMATION
  Report Type: 
  Country: None (occurrence: None)
  Receive Date: 20061026
  Receipt Date: 20060901
  Transmission Date: 20070319
  Serious: No
  Sender: FDA-Public Use
  Company Number: 2006107306

PATIENT
  Age: 78 Year
  Sex: Female
  Weight: 90.7194 kg

DRUGS (2)
  1. LYRICA [Suspect]
     Indication: PAIN
     Dosage: 50 MG (50 MG, 1 IN 1 D)
     Dates: start: 20060801, end: 20060828
  2. ALL THERAPEUTIC PRODUCTS (ALL OTHER THERAPEUTIC PRODUCTS) [Concomitant]

REACTIONS (4)
  - BLOOD PRESSURE FLUCTUATION [None]
  - DIARRHOEA [None]
  - PAIN [None]
  - WEIGHT INCREASED [None]
